FAERS Safety Report 10369815 (Version 1)
Quarter: 2014Q3

REPORT INFORMATION
  Report Type: Spontaneous
  Country: GB (occurrence: GB)
  Receive Date: 20140808
  Receipt Date: 20140808
  Transmission Date: 20150326
  Serious: Yes (Other)
  Sender: FDA-Public Use
  Company Number: GB-ACCORD-025160

PATIENT
  Age: 54 Year
  Sex: Male
  Weight: 82 kg

DRUGS (2)
  1. LOSARTAN [Concomitant]
     Active Substance: LOSARTAN
     Dates: start: 20140408, end: 20140606
  2. TRAMADOL/TRAMADOL HYDROCHLORIDE [Suspect]
     Active Substance: TRAMADOL HYDROCHLORIDE
     Indication: PRODUCT USED FOR UNKNOWN INDICATION
     Dates: start: 20140602, end: 20140603

REACTIONS (1)
  - Epilepsy [Recovered/Resolved]

NARRATIVE: CASE EVENT DATE: 20140604
